FAERS Safety Report 13650131 (Version 2)
Quarter: 2017Q3

REPORT INFORMATION
  Report Type: Spontaneous
  Country: US (occurrence: US)
  Receive Date: 20170614
  Receipt Date: 20170712
  Transmission Date: 20171127
  Serious: No
  Sender: FDA-Public Use
  Company Number: US-PFIZER INC-2017256593

PATIENT
  Sex: Female

DRUGS (1)
  1. XELJANZ XR [Suspect]
     Active Substance: TOFACITINIB CITRATE
     Dosage: 11 MG, DAILY

REACTIONS (8)
  - Myalgia [Unknown]
  - Lymph node pain [Unknown]
  - Pre-existing condition improved [Unknown]
  - Temporomandibular joint syndrome [Unknown]
  - Arthritis [Unknown]
  - Alopecia [Unknown]
  - Neck pain [Unknown]
  - Therapeutic response unexpected [Unknown]
